FAERS Safety Report 23719651 (Version 2)
Quarter: 2025Q1

REPORT INFORMATION
  Report Type: Spontaneous
  Country: US (occurrence: US)
  Receive Date: 20240408
  Receipt Date: 20250312
  Transmission Date: 20250409
  Serious: No
  Sender: UPSHER SMITH LABORATORIES
  Company Number: US-UPSHER-SMITH LABORATORIES, LLC-2024USL00178

PATIENT
  Sex: Male
  Weight: 108.84 kg

DRUGS (17)
  1. PREVALITE [Suspect]
     Active Substance: CHOLESTYRAMINE
     Indication: Diarrhoea
     Route: 048
     Dates: start: 2017
  2. PREVALITE [Suspect]
     Active Substance: CHOLESTYRAMINE
     Route: 048
  3. REPATHA [Concomitant]
     Active Substance: EVOLOCUMAB
  4. LOSARTAN [Concomitant]
     Active Substance: LOSARTAN
  5. PROPRANOLOL [Concomitant]
     Active Substance: PROPRANOLOL HYDROCHLORIDE
  6. GLIMEPIRIDE [Concomitant]
     Active Substance: GLIMEPIRIDE
  7. PROVIGIL [Concomitant]
     Active Substance: MODAFINIL
  8. CO-Q Q12 [Concomitant]
  9. TURKEY TAIL MUSHROOM [Concomitant]
  10. VITAMINS [Concomitant]
     Active Substance: VITAMINS
  11. MAGNESIUM [Concomitant]
     Active Substance: MAGNESIUM
  12. POTASSIUM [Concomitant]
     Active Substance: POTASSIUM
  13. NAC N ACETYL L CYSTEINE [Concomitant]
  14. VITAMIN D3 [Concomitant]
     Active Substance: CHOLECALCIFEROL
  15. HERBALS\WITHANIA SOMNIFERA ROOT [Concomitant]
     Active Substance: HERBALS\WITHANIA SOMNIFERA ROOT
  16. MUCUS RELIEF [Concomitant]
     Active Substance: GUAIFENESIN
  17. CREATINE [Concomitant]
     Active Substance: CREATINE

REACTIONS (3)
  - Central sleep apnoea syndrome [Recovering/Resolving]
  - Sleep disorder [Recovering/Resolving]
  - Middle insomnia [Recovering/Resolving]

NARRATIVE: CASE EVENT DATE: 20230101
